FAERS Safety Report 18130859 (Version 1)
Quarter: 2020Q3

REPORT INFORMATION
  Report Type: Spontaneous
  Country: ZA (occurrence: ZA)
  Receive Date: 20200810
  Receipt Date: 20200810
  Transmission Date: 20201103
  Serious: Yes (Hospitalization)
  Sender: FDA-Public Use
  Company Number: ZA-AMERICAN REGENT INC-2020001636

PATIENT
  Age: 47 Year
  Sex: Female

DRUGS (2)
  1. VENOFER [Suspect]
     Active Substance: IRON SUCROSE
     Indication: PRODUCT USED FOR UNKNOWN INDICATION
     Dosage: UNK
  2. VENOFER [Suspect]
     Active Substance: IRON SUCROSE
     Dosage: 25 MG OF VENOFER IN 100ML NORMAL SALINE OVER 15 MINUTE AT A RATE OF 400ML/HOUR AND 75MG OF VENOFER I
     Dates: start: 20200627, end: 2020

REACTIONS (4)
  - Nausea [Not Recovered/Not Resolved]
  - Electrocardiogram abnormal [Unknown]
  - Bradycardia [Not Recovered/Not Resolved]
  - Dizziness [Unknown]

NARRATIVE: CASE EVENT DATE: 20200627
